FAERS Safety Report 7199241-2 (Version None)
Quarter: 2010Q4

REPORT INFORMATION
  Report Type: 
  Country: None (occurrence: None)
  Receive Date: 20101223
  Receipt Date: 20101223
  Transmission Date: 20110411
  Serious: Yes (Hospitalization)
  Sender: FDA-Public Use
  Company Number: None

PATIENT
  Sex: Male
  Weight: 88.5 kg

DRUGS (9)
  1. CISPLATIN [Suspect]
     Indication: TONGUE NEOPLASM MALIGNANT STAGE UNSPECIFIED
     Dates: start: 20100611, end: 20100709
  2. IBUPROFEN [Concomitant]
  3. OXYCODNE [Concomitant]
  4. OXYCONTIN [Concomitant]
  5. EMEND [Concomitant]
  6. DECADRON [Concomitant]
  7. MIRALAX [Concomitant]
  8. DECADRON [Concomitant]
  9. SENOKOT [Concomitant]

REACTIONS (5)
  - BLOOD CREATININE INCREASED [None]
  - DEHYDRATION [None]
  - HYPOPHAGIA [None]
  - NAUSEA [None]
  - URINARY RETENTION [None]
